FAERS Safety Report 6968433-7 (Version None)
Quarter: 2010Q3

REPORT INFORMATION
  Report Type: 
  Country: None (occurrence: None)
  Receive Date: 20100907
  Receipt Date: 20100825
  Transmission Date: 20110219
  Serious: Yes (Other)
  Sender: FDA-Public Use
  Company Number: PHHY2010IN57685

PATIENT
  Age: 76 Year
  Sex: Female

DRUGS (3)
  1. ZOLEDRONIC ACID [Suspect]
     Indication: METASTASES TO BONE
     Dosage: UNK
  2. PAMIDRONATE DISODIUM [Suspect]
  3. BISPHOSPHONATES [Suspect]
     Route: 048

REACTIONS (4)
  - BONE SWELLING [None]
  - OSTEONECROSIS OF JAW [None]
  - PAIN IN JAW [None]
  - TOOTH EXTRACTION [None]
